FAERS Safety Report 12589809 (Version 1)
Quarter: 2016Q3

REPORT INFORMATION
  Report Type: Spontaneous
  Country: SV (occurrence: SV)
  Receive Date: 20160725
  Receipt Date: 20160725
  Transmission Date: 20161109
  Serious: Yes (Hospitalization, Other)
  Sender: FDA-Public Use
  Company Number: SV-ABBVIE-16P-050-1682063-00

PATIENT
  Age: 26 Year
  Sex: Female
  Weight: 60 kg

DRUGS (3)
  1. CEFEPIME [Concomitant]
     Active Substance: CEFEPIME HYDROCHLORIDE
     Indication: PERITONITIS BACTERIAL
     Route: 042
     Dates: start: 20160712, end: 20160713
  2. ZEMPLAR [Suspect]
     Active Substance: PARICALCITOL
     Indication: HYPERPARATHYROIDISM SECONDARY
     Dosage: INTERRUPTED
     Route: 048
     Dates: start: 20160629, end: 20160712
  3. IMIPENEM [Concomitant]
     Active Substance: IMIPENEM
     Indication: PERITONITIS BACTERIAL
     Route: 042
     Dates: start: 20160628, end: 20160711

REACTIONS (4)
  - Seizure [Not Recovered/Not Resolved]
  - Electroencephalogram abnormal [Unknown]
  - Systemic lupus erythematosus [Not Recovered/Not Resolved]
  - Vasculitis cerebral [Unknown]

NARRATIVE: CASE EVENT DATE: 20160709
